FAERS Safety Report 8504755-6 (Version None)
Quarter: 2012Q3

REPORT INFORMATION
  Report Type: 
  Country: None (occurrence: None)
  Receive Date: 20120712
  Receipt Date: 20120613
  Transmission Date: 20120928
  Serious: Yes (Hospitalization)
  Sender: FDA-Public Use
  Company Number: JP-009507513-1206USA01063

PATIENT

DRUGS (10)
  1. AMLODIPINE BESYLATE [Concomitant]
     Indication: HYPERTENSION
     Route: 048
  2. FUNGIZONE [Concomitant]
     Route: 048
  3. SULFAMETHOXAZOLE AND TRIMETHOPRIM [Concomitant]
     Dosage: 1 DF, QD
     Route: 048
     Dates: start: 20120401, end: 20120518
  4. BISOPROLOL FUMARATE [Concomitant]
     Route: 048
  5. FOSAMAX [Suspect]
     Indication: OSTEOPOROSIS
     Dosage: 35 MG, QW
     Route: 048
     Dates: start: 20120514, end: 20120514
  6. PREDNISOLONE [Concomitant]
     Indication: ANTINEUTROPHIL CYTOPLASMIC ANTIBODY
     Route: 048
  7. BISOPROLOL FUMARATE [Concomitant]
     Dosage: GARGLE - OROPHARINGEAL
  8. LENDORMIN [Concomitant]
     Route: 048
  9. ISODINE [Concomitant]
     Dosage: OROPHARYNGEAL GARGLE
     Route: 049
  10. RABEPRAZOLE SODIUM [Concomitant]
     Dosage: 10 MG, QD
     Route: 048
     Dates: start: 20120401, end: 20120518

REACTIONS (1)
  - WHITE BLOOD CELL COUNT DECREASED [None]
